FAERS Safety Report 8738317 (Version 2)
Quarter: 2012Q4

REPORT INFORMATION
  Report Type: 
  Country: US (occurrence: US)
  Receive Date: 20120823
  Receipt Date: 20120905
  Transmission Date: 20130627
  Serious: Yes (Hospitalization, Disabling)
  Sender: FDA-Public Use
  Company Number: US-BAYER-2012-086419

PATIENT
  Age: 57 Year
  Sex: Male

DRUGS (1)
  1. LEVITRA [Suspect]
     Indication: ERECTILE DYSFUNCTION
     Dosage: 10 mg, 5-30 tablets per month
     Dates: start: 200506, end: 201104

REACTIONS (10)
  - Headache [None]
  - Vision blurred [None]
  - Optic ischaemic neuropathy [Not Recovered/Not Resolved]
  - Headache [Not Recovered/Not Resolved]
  - Blindness unilateral [Not Recovered/Not Resolved]
  - Injury [Not Recovered/Not Resolved]
  - Pain [Not Recovered/Not Resolved]
  - Anxiety [None]
  - Activities of daily living impaired [Not Recovered/Not Resolved]
  - Anhedonia [None]
